FAERS Safety Report 4969296-1 (Version None)
Quarter: 2006Q2

REPORT INFORMATION
  Report Type: 
  Country: None (occurrence: None)
  Receive Date: 20060405
  Receipt Date: 20060324
  Transmission Date: 20061013
  Serious: No
  Sender: FDA-Public Use
  Company Number: HQWYE550428MAR06

PATIENT
  Age: 24 Year
  Sex: Female
  Weight: 49.94 kg

DRUGS (4)
  1. EFFEXOR XR [Suspect]
     Indication: MANIA
     Dosage: 225 MG 1X PER 1 DAY, ORAL
     Route: 048
     Dates: end: 20060101
  2. XANAX [Concomitant]
  3. DEXTROAMPHETAMINE SULFATE [Concomitant]
  4. CENTRUM (MULTIVITAMIN/MULTIMINERAL) [Concomitant]

REACTIONS (15)
  - ANGER [None]
  - CONFUSIONAL STATE [None]
  - CRYING [None]
  - DIARRHOEA [None]
  - DISTURBANCE IN ATTENTION [None]
  - DIZZINESS [None]
  - DRUG INEFFECTIVE [None]
  - DRUG WITHDRAWAL SYNDROME [None]
  - FATIGUE [None]
  - GAIT DISTURBANCE [None]
  - MUSCULAR WEAKNESS [None]
  - MYALGIA [None]
  - NAUSEA [None]
  - PALPITATIONS [None]
  - PARAESTHESIA [None]
